FAERS Safety Report 7205510-X (Version None)
Quarter: 2010Q4

REPORT INFORMATION
  Report Type: 
  Country: None (occurrence: None)
  Receive Date: 20101231
  Receipt Date: 20101228
  Transmission Date: 20110411
  Serious: Yes (Hospitalization)
  Sender: FDA-Public Use
  Company Number: US-AMGEN-KDC439794

PATIENT

DRUGS (9)
  1. ETANERCEPT [Suspect]
     Indication: PSORIASIS
     Dosage: 50 MG, 2 TIMES/WK
     Route: 058
     Dates: start: 20070119
  2. LIPITOR [Concomitant]
     Dosage: 10 MG, QD
     Route: 048
     Dates: start: 20100909
  3. COREG [Concomitant]
  4. IRON [Concomitant]
  5. POTASSIUM [Concomitant]
  6. LISINOPRIL [Concomitant]
  7. ATENOLOL [Concomitant]
  8. FELODIPINE [Concomitant]
  9. DILTIAZEM [Concomitant]

REACTIONS (2)
  - NEPHRECTOMY [None]
  - RENAL CANCER [None]
